FAERS Safety Report 5177410-0 (Version None)
Quarter: 2006Q4

REPORT INFORMATION
  Report Type: 
  Country: None (occurrence: None)
  Receive Date: 20061218
  Receipt Date: 20061208
  Transmission Date: 20070319
  Serious: Yes (Hospitalization)
  Sender: FDA-Public Use
  Company Number: US-SHR-US-2006-038845

PATIENT
  Age: 24 Year
  Sex: Female
  Weight: 104 kg

DRUGS (2)
  1. YAZ [Suspect]
     Dosage: 1 TAB(S), 1X/DAY
     Route: 048
     Dates: start: 20061028, end: 20061123
  2. PROTONIX [Concomitant]
     Dosage: 1 UNK, 1X/DAY

REACTIONS (4)
  - BACK PAIN [None]
  - NAUSEA [None]
  - RENAL FAILURE [None]
  - VOMITING [None]
